FAERS Safety Report 23191714 (Version 2)
Quarter: 2023Q4

REPORT INFORMATION
  Report Type: Spontaneous
  Country: LB (occurrence: LB)
  Receive Date: 20231116
  Receipt Date: 20231129
  Transmission Date: 20240110
  Serious: Yes (Other)
  Sender: FDA-Public Use
  Company Number: LB-AMERICAN REGENT INC-2023002627

PATIENT
  Age: 30 Year
  Sex: Female
  Weight: 75 kg

DRUGS (2)
  1. FERINJECT [Suspect]
     Active Substance: FERRIC CARBOXYMALTOSE
     Indication: Iron deficiency
     Dosage: 1000 MILLIGRAM, DILUTED IN 250 ML NORMAL SALINE (1 IN 1 TOTAL)
     Dates: start: 20231020, end: 20231020
  2. DOSTINEX [Concomitant]
     Active Substance: CABERGOLINE
     Indication: Product used for unknown indication
     Dosage: UNK
     Route: 065

REACTIONS (3)
  - Haematemesis [Recovered/Resolved]
  - Hyperpyrexia [Recovered/Resolved]
  - Headache [Recovered/Resolved]

NARRATIVE: CASE EVENT DATE: 20231020
